FAERS Safety Report 6016931-5 (Version None)
Quarter: 2008Q4

REPORT INFORMATION
  Report Type: 
  Country: None (occurrence: None)
  Receive Date: 20081218
  Receipt Date: 20081205
  Transmission Date: 20090506
  Serious: Yes (Hospitalization)
  Sender: FDA-Public Use
  Company Number: 235530J05USA

PATIENT
  Age: 38 Year
  Sex: Female
  Weight: 75 kg

DRUGS (3)
  1. REBIF [Suspect]
     Indication: MULTIPLE SCLEROSIS
     Dosage: 44 MCG, 3 IN 1 WEEKS, SUBCUTANEOUS
     Route: 058
     Dates: start: 20080301
  2. PROCARDIA [Interacting]
  3. METOPROLOL (METOPROLOL /00376901/) [Concomitant]

REACTIONS (3)
  - ARTERIOSPASM CORONARY [None]
  - CHEST PAIN [None]
  - MITRAL VALVE INCOMPETENCE [None]
